FAERS Safety Report 5139402-7 (Version None)
Quarter: 2006Q4

REPORT INFORMATION
  Report Type: 
  Country: None (occurrence: None)
  Receive Date: 20061030
  Receipt Date: 20051111
  Transmission Date: 20070319
  Serious: No
  Sender: FDA-Public Use
  Company Number: US-GLAXOSMITHKLINE-A0581958A

PATIENT
  Age: 85 Year
  Sex: Male
  Weight: 84.1 kg

DRUGS (2)
  1. SEREVENT [Suspect]
     Indication: EMPHYSEMA
     Route: 055
  2. COMBIVENT [Concomitant]
     Indication: EMPHYSEMA
     Route: 055

REACTIONS (2)
  - DRUG INEFFECTIVE [None]
  - PHARMACEUTICAL PRODUCT COMPLAINT [None]
